FAERS Safety Report 9913436 (Version 1)
Quarter: 2014Q1

REPORT INFORMATION
  Report Type: Spontaneous
  Country: US (occurrence: None)
  Receive Date: 20140212
  Receipt Date: 20140212
  Transmission Date: 20141002
  Serious: Yes (Death, Other)
  Sender: FDA-Public Use
  Company Number: AUR-APL-2014-01162

PATIENT
  Age: 36 Year
  Sex: Male

DRUGS (13)
  1. LOSARTAN (LOSARTAN) [Suspect]
     Indication: PRODUCT USED FOR UNKNOWN INDICATION
     Route: 048
  2. AMLODIPINE (AMLODIPINE) [Suspect]
  3. FINASTERIDE (FINASTERIDE) [Suspect]
  4. METOPROLOL (METOPROLOL) [Suspect]
  5. MECLIZINE [Suspect]
  6. QUININE [Suspect]
  7. ISOSORBIDE DINITRATE (ISOSORBIDE DINITRATE) (ISOSORBIDE DINITRATE) [Suspect]
  8. TAMSULOSIN [Suspect]
  9. POTASSIUM CHLORIDE (POTASSIUM CHLORIDE) [Suspect]
  10. FUROSEMIDE (FUROSEMIDE) [Suspect]
  11. ETHANOL [Suspect]
  12. MIDAZOLAM (MIDAZOLAM) [Suspect]
  13. TEMAZEPAM (TEMAZEPAM) [Suspect]

REACTIONS (4)
  - Completed suicide [None]
  - Respiratory arrest [None]
  - Cardiac arrest [None]
  - Drug abuse [None]
